FAERS Safety Report 9975391 (Version 1)
Quarter: 2014Q1

REPORT INFORMATION
  Report Type: Report from Study
  Country: US (occurrence: US)
  Receive Date: 20140306
  Receipt Date: 20140306
  Transmission Date: 20141002
  Serious: No
  Sender: FDA-Public Use
  Company Number: US-ABBVIE-13P-163-1159527-00

PATIENT
  Age: 21 Year
  Sex: Male

DRUGS (2)
  1. HUMIRA [Suspect]
     Indication: CROHN^S DISEASE
  2. ENTOCORT [Concomitant]
     Indication: CROHN^S DISEASE
     Dosage: DAILY, BUT WEANING OFF MEDICATION

REACTIONS (2)
  - Inflammation [Recovering/Resolving]
  - Crohn^s disease [Recovering/Resolving]
